FAERS Safety Report 8923441 (Version 2)
Quarter: 2012Q4

REPORT INFORMATION
  Report Type: 
  Country: TR (occurrence: TR)
  Receive Date: 20121124
  Receipt Date: 20121204
  Transmission Date: 20130627
  Serious: Yes (Other)
  Sender: FDA-Public Use
  Company Number: TR-009507513-1211TUR006501

PATIENT
  Age: 72 Year
  Sex: Female

DRUGS (2)
  1. IMIPENEM (+) CILASTATIN SODIUM [Suspect]
     Indication: SEPSIS
  2. PIPERACILLIN SODIUM (+) TAZOBACTAM SODIUM [Concomitant]
     Indication: PNEUMONIA

REACTIONS (1)
  - Status epilepticus [Recovered/Resolved]
